FAERS Safety Report 19844254 (Version 1)
Quarter: 2021Q3

REPORT INFORMATION
  Report Type: Spontaneous
  Country: FI (occurrence: FI)
  Receive Date: 20210916
  Receipt Date: 20210916
  Transmission Date: 20211014
  Serious: Yes (Hospitalization)
  Sender: FDA-Public Use
  Company Number: FI-PFIZER INC-202101148906

PATIENT
  Age: 55 Year
  Sex: Male

DRUGS (1)
  1. SALAZOPYRIN EN [Suspect]
     Active Substance: SULFASALAZINE
     Indication: RHEUMATIC DISORDER
     Dosage: 2000 MG, DAILY
     Dates: start: 20210610, end: 20210804

REACTIONS (5)
  - Platelet count decreased [Recovering/Resolving]
  - Agranulocytosis [Recovering/Resolving]
  - Haemoglobin decreased [Recovering/Resolving]
  - Oropharyngeal pain [Recovering/Resolving]
  - Pyrexia [Recovering/Resolving]

NARRATIVE: CASE EVENT DATE: 20210730
